FAERS Safety Report 26131428 (Version 1)
Quarter: 2025Q4

REPORT INFORMATION
  Report Type: Spontaneous
  Country: EU (occurrence: EU)
  Receive Date: 20251208
  Receipt Date: 20251208
  Transmission Date: 20260118
  Serious: Yes (Life-Threatening)
  Sender: MYLAN
  Company Number: None

PATIENT
  Age: 35 Year
  Sex: Male
  Weight: 95 kg

DRUGS (3)
  1. REMIFENTANIL [Suspect]
     Active Substance: REMIFENTANIL
     Indication: General anaesthesia
     Dosage: 1 MILLIGRAM, 1 TOTAL
     Dates: start: 20241008, end: 20241008
  2. CLONIDINE HYDROCHLORIDE [4]
     Active Substance: CLONIDINE HYDROCHLORIDE
     Indication: General anaesthesia
     Dosage: 75 MICROGRAM, 1 TOTAL
     Dates: start: 20241008, end: 20241008
  3. MAGNESIUM SULFATE ANHYDROUS [4]
     Active Substance: MAGNESIUM SULFATE ANHYDROUS
     Indication: General anaesthesia
     Dosage: 3 GRAM, 1 TOTAL
     Dates: start: 20241008, end: 20241008

REACTIONS (2)
  - Cardio-respiratory arrest [Recovered/Resolved]
  - Wrong product administered [Recovered/Resolved]

NARRATIVE: CASE EVENT DATE: 20241008
